FAERS Safety Report 16813237 (Version 1)
Quarter: 2019Q3

REPORT INFORMATION
  Report Type: Spontaneous
  Country: IL (occurrence: IL)
  Receive Date: 20190916
  Receipt Date: 20190916
  Transmission Date: 20191005
  Serious: Yes (Hospitalization)
  Sender: FDA-Public Use
  Company Number: PHHY2019IL214488

PATIENT

DRUGS (1)
  1. KYMRIAH [Suspect]
     Active Substance: TISAGENLECLEUCEL
     Indication: DIFFUSE LARGE B-CELL LYMPHOMA
     Dosage: UNK, ONCE/SINGLE
     Route: 065

REACTIONS (4)
  - Cytokine release syndrome [Recovered/Resolved]
  - Pyrexia [Unknown]
  - Blood pressure fluctuation [Unknown]
  - Altered state of consciousness [Unknown]
